FAERS Safety Report 25363020 (Version 3)
Quarter: 2025Q2

REPORT INFORMATION
  Report Type: Spontaneous
  Country: HR (occurrence: HR)
  Receive Date: 20250527
  Receipt Date: 20250610
  Transmission Date: 20250716
  Serious: Yes (Hospitalization, Other)
  Sender: MYLAN
  Company Number: HR-BoehringerIngelheim-2025-BI-025998

PATIENT
  Age: 62 Year
  Sex: Female

DRUGS (4)
  1. DABIGATRAN [Interacting]
     Active Substance: DABIGATRAN
     Indication: Atrial flutter
     Dosage: 150 MILLIGRAM, QD
  2. DABIGATRAN [Interacting]
     Active Substance: DABIGATRAN
     Indication: Anticoagulant therapy
  3. AMIODARONE [Interacting]
     Active Substance: AMIODARONE
     Indication: Atrial flutter
     Dosage: 100 MILLIGRAM, QD
  4. AMIODARONE [Interacting]
     Active Substance: AMIODARONE
     Indication: Anticoagulant therapy

REACTIONS (17)
  - Dyspnoea exertional [Unknown]
  - Pericardial effusion [Recovered/Resolved]
  - Hypoproteinaemia [Unknown]
  - Inflammatory marker increased [Recovered/Resolved]
  - Gastritis erosive [Unknown]
  - Carotid artery stenosis [Unknown]
  - Brachiocephalic artery stenosis [Unknown]
  - Subclavian artery stenosis [Unknown]
  - Aortic aneurysm [Unknown]
  - Pericarditis [Unknown]
  - Fibrin abnormal [Unknown]
  - Positron emission tomogram abnormal [Unknown]
  - Lymphadenopathy [Unknown]
  - Pulmonary mass [Unknown]
  - Normocytic anaemia [Recovered/Resolved]
  - Drug interaction [Recovered/Resolved]
  - Amino acid level increased [Unknown]
